APPROVED DRUG PRODUCT: MAXAIR
Active Ingredient: PIRBUTEROL ACETATE
Strength: EQ 0.2MG BASE/INH
Dosage Form/Route: AEROSOL, METERED;INHALATION
Application: N019009 | Product #001
Applicant: BAUSCH HEALTH US LLC
Approved: Dec 30, 1986 | RLD: No | RS: No | Type: DISCN